FAERS Safety Report 16489018 (Version 1)
Quarter: 2019Q2

REPORT INFORMATION
  Report Type: Spontaneous
  Country: US (occurrence: US)
  Receive Date: 20190628
  Receipt Date: 20190628
  Transmission Date: 20190711
  Serious: Yes (Other)
  Sender: FDA-Public Use
  Company Number: US-LEITERS-2069748

PATIENT

DRUGS (16)
  1. TOBRAMYCIN. [Concomitant]
     Active Substance: TOBRAMYCIN
  2. BALANCED SALT [Concomitant]
     Active Substance: CALCIUM CHLORIDE\MAGNESIUM CHLORIDE\POTASSIUM CHLORIDE\SODIUM ACETATE\SODIUM CHLORIDE\SODIUM CITRATE
  3. DIAMOX SEQUELS [Concomitant]
     Active Substance: ACETAZOLAMIDE
  4. PROPARACAINE HYDROCHLORIDE. [Concomitant]
     Active Substance: PROPARACAINE HYDROCHLORIDE
  5. DIFLUPREDNATE [Concomitant]
     Active Substance: DIFLUPREDNATE
  6. MIOCHOL E [Concomitant]
     Active Substance: ACETYLCHOLINE CHLORIDE
  7. TIMOLOL. [Concomitant]
     Active Substance: TIMOLOL
  8. TROPICAMIDE. [Concomitant]
     Active Substance: TROPICAMIDE
  9. KETOROLAC [Concomitant]
     Active Substance: KETOROLAC\KETOROLAC TROMETHAMINE
  10. OCUCOAT VISCOELASTIC [Concomitant]
  11. ARTIFICIAL TEARS [Concomitant]
     Active Substance: GLYCERIN\HYPROMELLOSES\POLYETHYLENE GLYCOL 400
  12. CEFUROXIME 10 MG/ML IN 0.9% SODIUM CHLORIDE, INTRAVITREAL INJECTION, 1 [Suspect]
     Active Substance: CEFUROXIME SODIUM
     Indication: ENDOPHTHALMITIS
     Route: 047
     Dates: start: 20190522, end: 20190522
  13. POLYMYXIN B SULFATE AND TRIMETHOPRIM [Concomitant]
     Active Substance: POLYMYXIN B SULFATE\TRIMETHOPRIM SULFATE
  14. PHENYLEPHRINE HYDROCHLORIDE OPHTHALMIC [Concomitant]
     Active Substance: PHENYLEPHRINE HYDROCHLORIDE
  15. EPINEPHRINE 0.25 MG/ML/LIDOCAINE HCL 7.5 MG/ML COMPOUNDED BY IMPRIMIS [Concomitant]
  16. SODIUM CHLORIDE. [Concomitant]
     Active Substance: SODIUM CHLORIDE

REACTIONS (1)
  - Cataract [Recovering/Resolving]

NARRATIVE: CASE EVENT DATE: 20190523
